FAERS Safety Report 25011581 (Version 1)
Quarter: 2025Q1

REPORT INFORMATION
  Report Type: Spontaneous
  Country: FR (occurrence: FR)
  Receive Date: 20250226
  Receipt Date: 20250226
  Transmission Date: 20250409
  Serious: Yes (Other)
  Sender: RISING PHARMACEUTICALS
  Company Number: FR-RISINGPHARMA-FR-2025RISLIT00102

PATIENT
  Age: 27 Year
  Sex: Female

DRUGS (2)
  1. METHIMAZOLE [Suspect]
     Active Substance: METHIMAZOLE
     Indication: Hyperthyroidism
     Route: 065
  2. PROPRANOLOL [Concomitant]
     Active Substance: PROPRANOLOL HYDROCHLORIDE
     Indication: Product used for unknown indication
     Route: 065

REACTIONS (3)
  - Jaundice cholestatic [Recovered/Resolved]
  - Hepatic cytolysis [Recovered/Resolved]
  - Pruritus [Recovered/Resolved]
